FAERS Safety Report 5673935-X (Version None)
Quarter: 2008Q2

REPORT INFORMATION
  Report Type: 
  Country: None (occurrence: None)
  Receive Date: 20080226
  Receipt Date: 20070907
  Transmission Date: 20081010
  Serious: Yes (Other)
  Sender: FDA-Public Use
  Company Number: DSA_30555_2007

PATIENT
  Sex: Female
  Weight: 65.7716 kg

DRUGS (9)
  1. VASOTEC [Suspect]
     Indication: HYPERTENSION
     Dosage: (20 MG BID ORAL)
     Route: 048
     Dates: start: 20070820, end: 20070907
  2. VASOTEC [Suspect]
     Indication: HYPERTENSION
     Dosage: (20 MG BID ORAL)
     Route: 048
     Dates: start: 20060524, end: 20070819
  3. VASOTEC [Suspect]
     Indication: HYPERTENSION
     Dosage: (10 MG BID ORAL)
     Route: 048
     Dates: start: 20070908, end: 20070915
  4. LOPRESSOR [Concomitant]
  5. HYDROCHLOROTHIAZIDE [Concomitant]
  6. ASPIRIN [Concomitant]
  7. VYTORIN [Concomitant]
  8. PROTONIX /01263201/ [Concomitant]
  9. VITAMIN B-12 [Concomitant]

REACTIONS (8)
  - ASTHENIA [None]
  - CONFUSIONAL STATE [None]
  - DRUG INEFFECTIVE [None]
  - DYSPNOEA [None]
  - FATIGUE [None]
  - HEART RATE DECREASED [None]
  - NAUSEA [None]
  - PHARMACEUTICAL PRODUCT COMPLAINT [None]
